FAERS Safety Report 6176017-6 (Version None)
Quarter: 2009Q2

REPORT INFORMATION
  Report Type: 
  Country: None (occurrence: None)
  Receive Date: 20090501
  Receipt Date: 20090420
  Transmission Date: 20091009
  Serious: Yes (Hospitalization)
  Sender: FDA-Public Use
  Company Number: US-ROCHE-624998

PATIENT
  Age: 46 Year
  Sex: Female
  Weight: 59 kg

DRUGS (4)
  1. PEGASYS [Suspect]
     Indication: HEPATITIS C
     Route: 058
     Dates: start: 20081212, end: 20090318
  2. RIBAVIRIN [Suspect]
     Indication: HEPATITIS C
     Dosage: FREQUENCY: DAILY
     Route: 048
     Dates: start: 20081212, end: 20090313
  3. AMBIEN [Concomitant]
     Indication: INSOMNIA
     Dosage: FREQUENCY: BED TIME.
     Route: 048
     Dates: start: 20081201
  4. LEXAPRO [Concomitant]
     Indication: DEPRESSION
     Dosage: FREQUENCY: DAILY
     Route: 048
     Dates: start: 20081201

REACTIONS (4)
  - CALCULUS URETERIC [None]
  - HYDRONEPHROSIS [None]
  - PYELONEPHRITIS [None]
  - SEPSIS [None]
